FAERS Safety Report 8939947 (Version 8)
Quarter: 2013Q3

REPORT INFORMATION
  Report Type: Spontaneous
  Country: US (occurrence: US)
  Receive Date: 20121130
  Receipt Date: 20130917
  Transmission Date: 20140515
  Serious: Yes (Hospitalization, Other)
  Sender: FDA-Public Use
  Company Number: US-009507513-1211USA012835

PATIENT
  Sex: Female
  Weight: 64.85 kg

DRUGS (10)
  1. FOSAMAX PLUS D [Suspect]
     Indication: OSTEOPENIA
     Dosage: 70 MG/2800 IU, UNK
     Route: 048
     Dates: start: 200509, end: 200812
  2. ACTONEL [Suspect]
     Indication: OSTEOPENIA
     Dosage: 150 MG, UNK
     Route: 048
     Dates: start: 200901, end: 201105
  3. VITAMIN E [Concomitant]
     Dosage: 800 MG, UNK
     Dates: start: 1988
  4. NEXIUM [Concomitant]
     Dosage: UNK
     Dates: start: 200507, end: 201004
  5. HORMONES (UNSPECIFIED) [Concomitant]
     Dosage: UNK
     Dates: start: 200503
  6. LEVAQUIN [Concomitant]
     Indication: SINUSITIS
     Dosage: UNK
     Dates: start: 200503, end: 200909
  7. SINGULAIR [Concomitant]
     Indication: HYPERSENSITIVITY
     Dosage: UNK
     Dates: start: 200503, end: 200901
  8. SINGULAIR [Concomitant]
     Indication: ASTHMA
  9. ZYRTEC [Concomitant]
     Indication: HYPERSENSITIVITY
     Dosage: UNK
     Dates: start: 200509, end: 200705
  10. ZYRTEC [Concomitant]
     Indication: ASTHMA

REACTIONS (23)
  - Femur fracture [Unknown]
  - Intramedullary rod insertion [Unknown]
  - Low turnover osteopathy [Unknown]
  - Arthritis [Unknown]
  - Osteoporosis [Unknown]
  - Fracture delayed union [Unknown]
  - Fracture nonunion [Unknown]
  - Spinal osteoarthritis [Unknown]
  - Vertebral foraminal stenosis [Unknown]
  - Intervertebral disc protrusion [Unknown]
  - Epistaxis [Unknown]
  - Localised infection [Unknown]
  - Tenderness [Unknown]
  - Migraine [Unknown]
  - Appendicectomy [Unknown]
  - Osteopenia [Unknown]
  - Allergic sinusitis [Unknown]
  - Adverse event [Unknown]
  - Pain [Unknown]
  - Glaucoma [Unknown]
  - Dry eye [Unknown]
  - Back pain [Unknown]
  - Oedema peripheral [Unknown]
